FAERS Safety Report 20680061 (Version 1)
Quarter: 2022Q2

REPORT INFORMATION
  Report Type: Report from Study
  Country: TH (occurrence: TH)
  Receive Date: 20220406
  Receipt Date: 20220406
  Transmission Date: 20220721
  Serious: Yes (Other)
  Sender: FDA-Public Use
  Company Number: TH-ViiV Healthcare Limited-TH2022GSK057815

PATIENT
  Age: 30 Year
  Sex: Male
  Weight: 71.4 kg

DRUGS (5)
  1. DOLUTEGRAVIR [Suspect]
     Active Substance: DOLUTEGRAVIR
     Indication: Acute HIV infection
  2. TENOFOVIR DISOPROXIL FUMARATE [Suspect]
     Active Substance: TENOFOVIR DISOPROXIL FUMARATE
     Indication: Acute HIV infection
     Dosage: 300 MG, QD
     Dates: start: 20220217
  3. EMTRICITABINE [Suspect]
     Active Substance: EMTRICITABINE
     Indication: Acute HIV infection
     Dosage: 200 MG, QD
     Dates: start: 20220217
  4. ABACAVIR SULFATE\LAMIVUDINE [Suspect]
     Active Substance: ABACAVIR SULFATE\LAMIVUDINE
     Indication: Acute HIV infection
  5. RILPIVIRINE [Concomitant]
     Active Substance: RILPIVIRINE
     Indication: Acute HIV infection
     Dosage: 25 MG, QD
     Dates: start: 20220217

REACTIONS (1)
  - Hepatitis C [Unknown]

NARRATIVE: CASE EVENT DATE: 20220324
